FAERS Safety Report 14608470 (Version 1)
Quarter: 2018Q1

REPORT INFORMATION
  Report Type: Spontaneous
  Country: US (occurrence: US)
  Receive Date: 20180307
  Receipt Date: 20180307
  Transmission Date: 20180509
  Serious: No
  Sender: FDA-Public Use
  Company Number: US-TEVA-2018-US-855719

PATIENT
  Sex: Female

DRUGS (1)
  1. FENTANYL. [Suspect]
     Active Substance: FENTANYL
     Indication: BACK PAIN
     Dosage: DOSE STRENGTH:  50MCG 5
     Route: 065
     Dates: start: 201712

REACTIONS (2)
  - Rash pruritic [Unknown]
  - Application site rash [Unknown]

NARRATIVE: CASE EVENT DATE: 201712
